FAERS Safety Report 7619244-0 (Version None)
Quarter: 2011Q3

REPORT INFORMATION
  Report Type: 
  Country: None (occurrence: None)
  Receive Date: 20110718
  Receipt Date: 20110707
  Transmission Date: 20111222
  Serious: Yes (Other)
  Sender: FDA-Public Use
  Company Number: US-ASTRAZENECA-2011SE40676

PATIENT
  Age: 45 Year
  Sex: Female

DRUGS (3)
  1. VALIUM [Concomitant]
     Indication: VERTIGO
     Route: 048
  2. NEXIUM [Suspect]
     Route: 048
  3. CRESTOR [Suspect]
     Indication: HYPERCHOLESTEROLAEMIA
     Route: 048

REACTIONS (12)
  - BLOOD CHOLESTEROL INCREASED [None]
  - HEAD INJURY [None]
  - DYSPEPSIA [None]
  - VERTIGO [None]
  - AGEUSIA [None]
  - VOMITING [None]
  - ABDOMINAL DISCOMFORT [None]
  - DRUG DOSE OMISSION [None]
  - ROAD TRAFFIC ACCIDENT [None]
  - ANOSMIA [None]
  - FRACTURED SACRUM [None]
  - THROAT IRRITATION [None]
